FAERS Safety Report 9925129 (Version 1)
Quarter: 2014Q1

REPORT INFORMATION
  Report Type: Spontaneous
  Country: US (occurrence: None)
  Receive Date: 20140225
  Receipt Date: 20140225
  Transmission Date: 20141002
  Serious: Yes (Other)
  Sender: FDA-Public Use
  Company Number: None

PATIENT
  Age: 16 Year
  Sex: Male
  Weight: 74.84 kg

DRUGS (1)
  1. ISOTRETINOIN [Suspect]
     Indication: ACNE CYSTIC
     Route: 048
     Dates: start: 20131212, end: 20140221

REACTIONS (4)
  - Anger [None]
  - Abnormal behaviour [None]
  - Violence-related symptom [None]
  - Homicidal ideation [None]
